FAERS Safety Report 22638212 (Version 2)
Quarter: 2025Q3

REPORT INFORMATION
  Report Type: Report from Study
  Country: MX (occurrence: MX)
  Receive Date: 20230626
  Receipt Date: 20250715
  Transmission Date: 20251021
  Serious: Yes (Other)
  Sender: NOVARTIS
  Company Number: MX-002147023-NVSC2023MX124996

PATIENT
  Age: 63 Year
  Sex: Female
  Weight: 61 kg

DRUGS (7)
  1. EXFORGE [Suspect]
     Active Substance: AMLODIPINE BESYLATE\VALSARTAN
     Indication: Arterial disorder
     Dosage: 0.5 DOSAGE FORM, QD (160/5MG)
     Route: 048
     Dates: start: 2020
  2. EXFORGE [Suspect]
     Active Substance: AMLODIPINE BESYLATE\VALSARTAN
     Indication: Hypertension
  3. HYDREA [Concomitant]
     Active Substance: HYDROXYUREA
     Indication: Polycythaemia vera
     Dosage: 1 DOSAGE FORM, QD (500 MG)
     Route: 048
     Dates: start: 2011
  4. HYDREA [Concomitant]
     Active Substance: HYDROXYUREA
     Dosage: 1 DOSAGE FORM, Q12H (EVERY MONDAY, WEDNESDAY AND FRIDAY)
     Route: 048
  5. TIBOLONE [Concomitant]
     Active Substance: TIBOLONE
     Indication: Blood oestrogen
     Dosage: 2.5 MG, QD (STARTED SEVERAL YEARS AGO))
     Route: 048
  6. ASPIRIN [Concomitant]
     Active Substance: ASPIRIN
     Indication: Anticoagulant therapy
     Dosage: 1 UNK, QD (STARTED SEVERAL YEARS AGO)
     Route: 048
  7. PROPRANOLOL HYDROCHLORIDE [Concomitant]
     Active Substance: PROPRANOLOL HYDROCHLORIDE
     Indication: Arrhythmia
     Dosage: 1 DOSAGE FORM, QD (STARTED SEVERAL YEARS AGO)
     Route: 048

REACTIONS (4)
  - Trigeminal neuralgia [Not Recovered/Not Resolved]
  - Hypoaesthesia [Not Recovered/Not Resolved]
  - Haemoglobin increased [Not Recovered/Not Resolved]
  - Wrong technique in product usage process [Unknown]

NARRATIVE: CASE EVENT DATE: 20230122
